FAERS Safety Report 13857494 (Version 3)
Quarter: 2017Q3

REPORT INFORMATION
  Report Type: Spontaneous
  Country: DE (occurrence: DE)
  Receive Date: 20170810
  Receipt Date: 20170906
  Transmission Date: 20171127
  Serious: Yes (Other)
  Sender: FDA-Public Use
  Company Number: PHHY2017DE116102

PATIENT
  Age: 77 Year
  Sex: Female

DRUGS (3)
  1. ESTRADOT [Suspect]
     Active Substance: ESTRADIOL
     Indication: CARDIOVASCULAR EVENT PROPHYLAXIS
     Dosage: 50 UG IN 24 HOURS
     Route: 062
     Dates: end: 200003
  2. ESTRADOT [Suspect]
     Active Substance: ESTRADIOL
     Indication: OSTEOPOROSIS PROPHYLAXIS
     Dosage: 50 UG IN 24 HOURS
     Route: 062
     Dates: end: 2017
  3. ESTRAMON [Suspect]
     Active Substance: ESTRADIOL
     Indication: CARDIOVASCULAR EVENT PROPHYLAXIS
     Dosage: UNK
     Route: 065
     Dates: start: 2017

REACTIONS (9)
  - Fluid retention [Unknown]
  - General physical health deterioration [Unknown]
  - Asthenia [Unknown]
  - Product use in unapproved indication [Unknown]
  - Malaise [Unknown]
  - Thyroid function test abnormal [Unknown]
  - Tachycardia [Unknown]
  - Cardiac disorder [Unknown]
  - Dyspnoea [Unknown]
